FAERS Safety Report 11368316 (Version 1)
Quarter: 2015Q3

REPORT INFORMATION
  Report Type: Spontaneous
  Country: FR (occurrence: None)
  Receive Date: 20150811
  Receipt Date: 20150811
  Transmission Date: 20151125
  Serious: Yes (Disabling, Other)
  Sender: FDA-Public Use
  Company Number: None

PATIENT
  Age: 34 Year
  Sex: Female
  Weight: 53 kg

DRUGS (17)
  1. NEURONTIN [Suspect]
     Active Substance: GABAPENTIN
     Indication: NEURALGIA
     Dosage: 1 PILL
  2. VITAMIN D [Concomitant]
     Active Substance: CHOLECALCIFEROL
  3. CALCIUM [Concomitant]
     Active Substance: CALCIUM
  4. COLLAGEN [Concomitant]
     Active Substance: COLLAGEN
  5. GABAPENTIN. [Concomitant]
     Active Substance: GABAPENTIN
  6. CODEINE [Concomitant]
     Active Substance: CODEINE
  7. MAGNESIUM CHELATE [Concomitant]
  8. IODINE [Concomitant]
     Active Substance: IODINE
  9. TRAMADOL. [Concomitant]
     Active Substance: TRAMADOL
  10. PARACETAMOL [Concomitant]
     Active Substance: ACETAMINOPHEN
  11. KLAIRE LABS JOINT REVITAKIZER [Concomitant]
  12. SPIRULINA (FOR IRON) [Concomitant]
  13. B VITAMINS (THORNE) [Concomitant]
  14. POTASSIUM [Concomitant]
     Active Substance: POTASSIUM
  15. GAMMA GT SHOT [Concomitant]
  16. LYRICA [Concomitant]
     Active Substance: PREGABALIN
  17. DESMODIUM [Concomitant]

REACTIONS (5)
  - Memory impairment [None]
  - Weight decreased [None]
  - Dysphonia [None]
  - Abnormal behaviour [None]
  - Gait disturbance [None]

NARRATIVE: CASE EVENT DATE: 20150101
